FAERS Safety Report 18938461 (Version 1)
Quarter: 2021Q1

REPORT INFORMATION
  Report Type: Spontaneous
  Country: CA (occurrence: CA)
  Receive Date: 20210224
  Receipt Date: 20210224
  Transmission Date: 20210420
  Serious: Yes (Death, Other)
  Sender: FDA-Public Use
  Company Number: CA-TEVA-2021-CA-1882501

PATIENT
  Age: 55 Year
  Sex: Female

DRUGS (13)
  1. DOXORUBICIN HYDROCHLORIDE INJECTION [Suspect]
     Active Substance: DOXORUBICIN HYDROCHLORIDE
     Indication: HODGKIN^S DISEASE
     Route: 065
  2. CITALOPRAM [Concomitant]
     Active Substance: CITALOPRAM HYDROBROMIDE
  3. DACARBAZINE FOR INJECTION BP [Suspect]
     Active Substance: DACARBAZINE
     Indication: HODGKIN^S DISEASE
     Route: 065
  4. VINCRISTINE SULFATE. [Suspect]
     Active Substance: VINCRISTINE SULFATE
     Indication: HODGKIN^S DISEASE
     Route: 065
  5. ROSUVASTATIN. [Concomitant]
     Active Substance: ROSUVASTATIN
     Route: 058
  6. FILGRASTIM [Concomitant]
     Active Substance: FILGRASTIM
  7. TRIMETHOPRIM. [Concomitant]
     Active Substance: TRIMETHOPRIM
  8. SULBACTAM [Concomitant]
     Active Substance: SULBACTAM
  9. DEXILANT [Concomitant]
     Active Substance: DEXLANSOPRAZOLE
  10. BLEOMYCIN SULPHATE FOR INJECTION USP [Suspect]
     Active Substance: BLEOMYCIN SULFATE
     Indication: HODGKIN^S DISEASE
     Route: 065
  11. ELIQUIS [Concomitant]
     Active Substance: APIXABAN
  12. PREGABALIN. [Concomitant]
     Active Substance: PREGABALIN
  13. VALACYCLOVIR HYDROCHLORIDE TABLETS 1G [Concomitant]
     Active Substance: VALACYCLOVIR HYDROCHLORIDE

REACTIONS (4)
  - Pancytopenia [Fatal]
  - Brain oedema [Fatal]
  - Deep vein thrombosis [Fatal]
  - Hyperammonaemic encephalopathy [Fatal]
